FAERS Safety Report 7343383-5 (Version None)
Quarter: 2011Q1

REPORT INFORMATION
  Report Type: 
  Country: None (occurrence: None)
  Receive Date: 20110310
  Receipt Date: 20110221
  Transmission Date: 20110831
  Serious: Yes (Hospitalization, Other)
  Sender: FDA-Public Use
  Company Number: PHHY2011JP15285

PATIENT
  Weight: 57 kg

DRUGS (13)
  1. ATELEC [Concomitant]
     Indication: HYPERTENSION
     Dosage: 20 MG, UNK
     Route: 048
     Dates: start: 20080401
  2. LASIX [Concomitant]
     Indication: HYPERTENSION
     Dosage: 40 MG, UNK
     Route: 048
     Dates: start: 20100525
  3. LIPITOR [Concomitant]
     Dosage: 10 MG, UNK
     Route: 048
     Dates: start: 20080401
  4. ADALAT CC [Concomitant]
     Indication: HYPERTENSION
     Dosage: 60 MG, UNK
     Route: 048
     Dates: start: 20100420
  5. CARDENALIN [Concomitant]
     Indication: HYPERTENSION
     Dosage: UNK, 3MG, 6MG
     Dates: start: 20100525
  6. KREMEZIN [Concomitant]
     Dosage: 6 G, UNK
     Route: 048
     Dates: start: 20090210
  7. VALSARTAN [Suspect]
     Dosage: 160 MG, QD
     Route: 048
     Dates: start: 20100413
  8. ADALAT [Concomitant]
     Indication: HYPERTENSION
     Dosage: 40 MG, UNK
     Route: 048
     Dates: start: 20100413, end: 20100420
  9. FERROUS CITRATE [Concomitant]
     Dosage: 50 MG, UNK
     Route: 048
     Dates: start: 20090616
  10. PARIET [Concomitant]
     Dosage: 10 MG, UNK
     Route: 048
     Dates: start: 20100405, end: 20100613
  11. OMEPRAZON [Concomitant]
     Dosage: 10 MG, UNK
     Route: 048
     Dates: start: 20101205
  12. VALSARTAN [Suspect]
     Dosage: 80 MG, QD
     Route: 048
     Dates: start: 20081216, end: 20100413
  13. SODIUM BICARBONATE [Concomitant]
     Dosage: UNK, 2G, 3G
     Route: 048
     Dates: start: 20100420

REACTIONS (6)
  - BLOOD CREATININE INCREASED [None]
  - VOMITING [None]
  - BLOOD UREA INCREASED [None]
  - BLOOD URIC ACID INCREASED [None]
  - DIARRHOEA [None]
  - ANAEMIA [None]
